FAERS Safety Report 16139393 (Version 2)
Quarter: 2019Q2

REPORT INFORMATION
  Report Type: Report from Study
  Country: US (occurrence: US)
  Receive Date: 20190401
  Receipt Date: 20190402
  Transmission Date: 20190711
  Serious: No
  Sender: FDA-Public Use
  Company Number: US-ROCHE-2293484

PATIENT
  Sex: Female

DRUGS (2)
  1. OCREVUS [Suspect]
     Active Substance: OCRELIZUMAB
     Dosage: SECOND HALF
     Route: 065
     Dates: start: 20190316
  2. OCREVUS [Suspect]
     Active Substance: OCRELIZUMAB
     Indication: MULTIPLE SCLEROSIS
     Dosage: FIRST HALF
     Route: 065
     Dates: start: 20190302

REACTIONS (3)
  - Sinusitis [Recovered/Resolved]
  - Fatigue [Unknown]
  - Nasopharyngitis [Recovering/Resolving]
